FAERS Safety Report 9054396 (Version 1)
Quarter: 2013Q1

REPORT INFORMATION
  Report Type: Spontaneous
  Country: US (occurrence: US)
  Receive Date: 20130208
  Receipt Date: 20130208
  Transmission Date: 20140127
  Serious: No
  Sender: FDA-Public Use
  Company Number: US-GLAXOSMITHKLINE-A0990086A

PATIENT
  Sex: Female

DRUGS (9)
  1. PAXIL [Suspect]
     Indication: ANXIETY
     Dosage: 25MG PER DAY
     Route: 048
  2. PROTONIX [Concomitant]
  3. TRAZODONE [Concomitant]
  4. XANAX [Concomitant]
  5. ZANAFLEX [Concomitant]
  6. HYDROCODONE [Concomitant]
  7. LIBRAX [Concomitant]
  8. PHENERGAN [Concomitant]
  9. ZOFRAN [Concomitant]

REACTIONS (1)
  - Medication residue present [Unknown]
